FAERS Safety Report 8578084-9 (Version None)
Quarter: 2012Q3

REPORT INFORMATION
  Report Type: 
  Country: None (occurrence: None)
  Receive Date: 20120808
  Receipt Date: 20120807
  Transmission Date: 20120928
  Serious: Yes (Death, Hospitalization, Other)
  Sender: FDA-Public Use
  Company Number: PHEH2006US00998

PATIENT
  Sex: Male
  Weight: 90.703 kg

DRUGS (11)
  1. ZOMETA [Suspect]
     Indication: MULTIPLE MYELOMA
     Dosage: 4 MG, QMO
     Route: 042
     Dates: start: 20021216, end: 20050523
  2. PS 341 [Concomitant]
     Dates: start: 20030201
  3. CYCLOPHOSPHAMIDE [Concomitant]
     Dosage: 150 MG, BID
  4. MELPHALAN HYDROCHLORIDE [Concomitant]
  5. DECADRON PHOSPHATE [Concomitant]
     Dosage: 12 MG, Q12H
  6. AREDIA [Suspect]
     Indication: MULTIPLE MYELOMA
     Dosage: 90 MG, QMO
     Route: 042
     Dates: start: 19990101, end: 20020301
  7. INTERFERON [Concomitant]
  8. ALLOPURINOL [Concomitant]
     Dosage: 300 MG, QD
     Route: 048
  9. THALOMID [Concomitant]
     Dosage: 200 MG, QD
  10. PS 341 [Concomitant]
     Dates: start: 20030201
  11. DEXAMETHASONE [Concomitant]
     Dosage: 32 MG, QD
     Route: 048

REACTIONS (37)
  - HIP SURGERY [None]
  - NEUTROPENIA [None]
  - OSTEOMYELITIS [None]
  - DIARRHOEA [None]
  - AGRANULOCYTOSIS [None]
  - CARDIOPULMONARY FAILURE [None]
  - OSTEOPENIA [None]
  - COMPRESSION FRACTURE [None]
  - RIB FRACTURE [None]
  - BACK PAIN [None]
  - NEUROPATHY PERIPHERAL [None]
  - DEHYDRATION [None]
  - OSTEONECROSIS OF JAW [None]
  - ANXIETY [None]
  - CHRONIC OBSTRUCTIVE PULMONARY DISEASE [None]
  - CHILLS [None]
  - NECK PAIN [None]
  - CARDIOMEGALY [None]
  - PAIN [None]
  - OSTEOPOROSIS [None]
  - ATELECTASIS [None]
  - SEPSIS [None]
  - PNEUMONIA PNEUMOCOCCAL [None]
  - CARDIAC ARREST [None]
  - HYPERTENSION [None]
  - HYPOALBUMINAEMIA [None]
  - INTERVERTEBRAL DISC PROTRUSION [None]
  - EMOTIONAL DISTRESS [None]
  - PNEUMONIA [None]
  - DIABETES MELLITUS [None]
  - ARTERIOSCLEROSIS CORONARY ARTERY [None]
  - OSTEONECROSIS [None]
  - STREPTOCOCCAL SEPSIS [None]
  - ORAL CANDIDIASIS [None]
  - MUSCULOSKELETAL PAIN [None]
  - SOFT TISSUE MASS [None]
  - OSTEOARTHRITIS [None]
